FAERS Safety Report 7599828 (Version 3)
Quarter: 2013Q4

REPORT INFORMATION
  Report Type: Spontaneous
  Country: US (occurrence: US)
  Receive Date: 20100921
  Receipt Date: 20131230
  Transmission Date: 20140711
  Serious: Yes (Other)
  Sender: FDA-Public Use
  Company Number: US-BAYER-201034006NA

PATIENT
  Sex: Female
  Weight: 104.31 kg

DRUGS (6)
  1. YAZ [Suspect]
     Indication: PRODUCT USED FOR UNKNOWN INDICATION
     Route: 048
     Dates: start: 2005
  2. YASMIN [Suspect]
     Indication: PRODUCT USED FOR UNKNOWN INDICATION
     Dosage: UNK
     Route: 048
     Dates: start: 2005, end: 200804
  3. METFORMIN [Concomitant]
     Indication: POLYCYSTIC OVARIES
  4. METFORMIN [Concomitant]
     Indication: HORMONE LEVEL ABNORMAL
  5. METFORMIN [Concomitant]
     Indication: DIABETES PROPHYLAXIS
  6. SPIRONOLACTONE [Concomitant]
     Dosage: UNK
     Dates: start: 2007, end: 2008

REACTIONS (3)
  - Gallbladder injury [Unknown]
  - Vaginal haemorrhage [None]
  - Cholecystitis chronic [None]
